FAERS Safety Report 7395671-4 (Version None)
Quarter: 2011Q2

REPORT INFORMATION
  Report Type: 
  Country: None (occurrence: None)
  Receive Date: 20110405
  Receipt Date: 20110329
  Transmission Date: 20111010
  Serious: Yes (Hospitalization, Other)
  Sender: FDA-Public Use
  Company Number: BR-SANOFI-AVENTIS-2011SA019543

PATIENT
  Age: 1 Day
  Sex: Female
  Weight: 4.5 kg

DRUGS (5)
  1. LANTUS [Suspect]
     Route: 015
     Dates: start: 20100725, end: 20100727
  2. SOLOSTAR [Suspect]
  3. LANTUS [Suspect]
     Indication: GESTATIONAL DIABETES
     Route: 015
     Dates: start: 20100723, end: 20100724
  4. LANTUS [Suspect]
     Route: 015
     Dates: start: 20100728, end: 20100802
  5. LANTUS [Suspect]
     Route: 015
     Dates: start: 20100803, end: 20100829

REACTIONS (2)
  - RESPIRATORY DISORDER [None]
  - DRUG EXPOSURE DURING PREGNANCY [None]
